FAERS Safety Report 25032337 (Version 2)
Quarter: 2025Q2

REPORT INFORMATION
  Report Type: Report from Study
  Country: US (occurrence: US)
  Receive Date: 20250303
  Receipt Date: 20250402
  Transmission Date: 20250717
  Serious: Yes (Other)
  Sender: ABBVIE
  Company Number: US-ABBVIE-6152639

PATIENT
  Sex: Female

DRUGS (1)
  1. VENCLEXTA [Suspect]
     Active Substance: VENETOCLAX
     Indication: Chronic lymphocytic leukaemia
     Dosage: VENETOCLAX 100 MG 4 TIMES A DAY
     Route: 048
     Dates: start: 202409

REACTIONS (6)
  - Skin cancer [Unknown]
  - Increased tendency to bruise [Unknown]
  - Precancerous skin lesion [Unknown]
  - Platelet count decreased [Unknown]
  - Neutrophil count decreased [Unknown]
  - Erythema [Unknown]
